FAERS Safety Report 19810893 (Version 2)
Quarter: 2021Q4

REPORT INFORMATION
  Report Type: Spontaneous
  Country: US (occurrence: US)
  Receive Date: 20210909
  Receipt Date: 20211102
  Transmission Date: 20220303
  Serious: No
  Sender: FDA-Public Use
  Company Number: US-GSKCCFUS-CASE-01155909_AE-67913

PATIENT
  Sex: Male

DRUGS (1)
  1. VENTOLIN HFA [Suspect]
     Active Substance: ALBUTEROL SULFATE
     Indication: Product used for unknown indication
     Dosage: UNK

REACTIONS (5)
  - Sleep disorder [Unknown]
  - Dyspnoea [Unknown]
  - Muscle tightness [Unknown]
  - Drug ineffective [Unknown]
  - Product complaint [Unknown]
